FAERS Safety Report 13240721 (Version 1)
Quarter: 2017Q1

REPORT INFORMATION
  Report Type: Report from Study
  Country: BR (occurrence: BR)
  Receive Date: 20170216
  Receipt Date: 20170216
  Transmission Date: 20170428
  Serious: Yes (Other)
  Sender: FDA-Public Use
  Company Number: PHHY2016BR175263

PATIENT
  Sex: Female
  Weight: 66 kg

DRUGS (1)
  1. SANDOSTATIN LAR DEPOT [Suspect]
     Active Substance: OCTREOTIDE ACETATE
     Indication: ACROMEGALY
     Dosage: 20 MG, QMO
     Route: 065
     Dates: start: 2010

REACTIONS (10)
  - Swelling face [Unknown]
  - Depression [Unknown]
  - Hypoaesthesia eye [Not Recovered/Not Resolved]
  - Balance disorder [Recovering/Resolving]
  - Shock [Unknown]
  - Hypoaesthesia oral [Not Recovered/Not Resolved]
  - Neoplasm progression [Unknown]
  - Lip dry [Unknown]
  - Malaise [Unknown]
  - Dizziness [Recovering/Resolving]
